FAERS Safety Report 8396832-8 (Version None)
Quarter: 2012Q2

REPORT INFORMATION
  Report Type: 
  Country: None (occurrence: None)
  Receive Date: 20120530
  Receipt Date: 20120516
  Transmission Date: 20120825
  Serious: No
  Sender: FDA-Public Use
  Company Number: US-ASTRAZENECA-2012SE31630

PATIENT
  Age: 54 Year
  Sex: Male
  Weight: 86.2 kg

DRUGS (7)
  1. GEMFIBROZIL [Concomitant]
     Indication: HYPERTENSION
  2. NEXIUM [Suspect]
     Indication: DYSPEPSIA
     Route: 048
  3. ASPIRIN [Concomitant]
     Indication: ISCHAEMIC HEART DISEASE PROPHYLAXIS
  4. PRAVASTATIN [Concomitant]
     Indication: BLOOD CHOLESTEROL ABNORMAL
  5. LISINOPRIL [Concomitant]
     Indication: NERVOUS SYSTEM DISORDER
  6. GEMFIBROZIL [Concomitant]
     Indication: BLOOD CHOLESTEROL ABNORMAL
  7. PRAVASTATIN [Concomitant]
     Indication: HYPERTENSION

REACTIONS (4)
  - INTENTIONAL DRUG MISUSE [None]
  - DYSPEPSIA [None]
  - VOMITING [None]
  - MALAISE [None]
